FAERS Safety Report 13909894 (Version 1)
Quarter: 2017Q3

REPORT INFORMATION
  Report Type: Spontaneous
  Country: US (occurrence: US)
  Receive Date: 20170828
  Receipt Date: 20170828
  Transmission Date: 20171127
  Serious: Yes (Other)
  Sender: FDA-Public Use
  Company Number: US-AUROBINDO-AUR-APL-2017-39279

PATIENT
  Age: 49 Year
  Sex: Female

DRUGS (2)
  1. TRANEXAMIC ACID. [Suspect]
     Active Substance: TRANEXAMIC ACID
     Dosage: 650 UNK, UNK
     Route: 065
  2. TRANEXAMIC ACID. [Suspect]
     Active Substance: TRANEXAMIC ACID
     Indication: LEIOMYOMA
     Dosage: UNK MG, UNK
     Route: 065

REACTIONS (2)
  - Venous thrombosis [Recovered/Resolved]
  - Vasculitis [Recovered/Resolved]
